FAERS Safety Report 8369875-8 (Version None)
Quarter: 2012Q2

REPORT INFORMATION
  Report Type: 
  Country: None (occurrence: None)
  Receive Date: 20120518
  Receipt Date: 20120514
  Transmission Date: 20120825
  Serious: Yes (Hospitalization)
  Sender: FDA-Public Use
  Company Number: US-TEVA-338299USA

PATIENT
  Age: 76 Year
  Sex: Female

DRUGS (3)
  1. FLUCONAZOLE [Concomitant]
     Indication: CANDIDIASIS
     Route: 048
  2. AZITHROMYCIN [Suspect]
     Indication: OROPHARYNGEAL PAIN
     Route: 065
  3. TORADEX [Concomitant]
     Indication: CONJUNCTIVITIS
     Route: 047

REACTIONS (4)
  - ACUTE GENERALISED EXANTHEMATOUS PUSTULOSIS [None]
  - DEHYDRATION [None]
  - ORTHOSTATIC HYPOTENSION [None]
  - SYNCOPE [None]
